FAERS Safety Report 25871301 (Version 4)
Quarter: 2025Q4

REPORT INFORMATION
  Report Type: Report from Study
  Country: US (occurrence: US)
  Receive Date: 20251001
  Receipt Date: 20251111
  Transmission Date: 20260117
  Serious: Yes (Hospitalization)
  Sender: ALNYLAM PHARMACEUTICALS
  Company Number: US-ALNYLAM PHARMACEUTICALS, INC.-ALN-2025-006021

PATIENT
  Age: 45 Year

DRUGS (1)
  1. GIVLAARI [Suspect]
     Active Substance: GIVOSIRAN SODIUM
     Indication: Porphyria acute
     Dosage: 334.08 MILLIGRAM (189 MILLIGRAM/MILLILITER VIALS), MONTHLY

REACTIONS (5)
  - Sepsis [Unknown]
  - Porphyria acute [Unknown]
  - Vascular device infection [Unknown]
  - Intentional dose omission [Unknown]
  - Device occlusion [Unknown]
